FAERS Safety Report 8644626 (Version 2)
Quarter: 2013Q3

REPORT INFORMATION
  Report Type: Spontaneous
  Country: US (occurrence: US)
  Receive Date: 20120630
  Receipt Date: 20130722
  Transmission Date: 20140515
  Serious: Yes (Hospitalization)
  Sender: FDA-Public Use
  Company Number: US-ASTRAZENECA-2012SE34538

PATIENT
  Age: 50 Year
  Sex: Male
  Weight: 97.1 kg

DRUGS (19)
  1. NEXIUM [Suspect]
     Indication: GASTROOESOPHAGEAL REFLUX DISEASE
     Route: 048
     Dates: start: 2003
  2. NEXIUM [Suspect]
     Indication: GASTROOESOPHAGEAL REFLUX DISEASE
     Route: 048
     Dates: start: 20081111
  3. ALKA SELZTER [Concomitant]
     Dates: start: 201305
  4. MOTRIN [Concomitant]
     Indication: PAIN
  5. CYPROHEPT [Concomitant]
     Indication: MULTIPLE ALLERGIES
  6. LABETALOL [Concomitant]
     Indication: BLOOD PRESSURE ABNORMAL
  7. METFORMIN [Concomitant]
     Indication: DIABETES MELLITUS
  8. AMLODIPINE [Concomitant]
     Indication: BLOOD PRESSURE ABNORMAL
  9. BENAZEPRIL [Concomitant]
     Indication: BLOOD PRESSURE ABNORMAL
  10. SPIRONOLACTONE [Concomitant]
     Indication: ACNE
  11. CYMBALTA [Concomitant]
     Indication: MYALGIA
  12. POTASSIUM [Concomitant]
  13. FUROSEMIDE [Concomitant]
     Indication: BLOOD PRESSURE ABNORMAL
  14. PHENYTOIN [Concomitant]
     Indication: CONVULSION
  15. STARLIX [Concomitant]
     Indication: DIABETES MELLITUS
  16. TEMAZEPAM [Concomitant]
     Indication: INSOMNIA
  17. SIMVASTATIN [Concomitant]
     Indication: BLOOD CHOLESTEROL ABNORMAL
  18. ALBUTEROL [Concomitant]
     Indication: ASTHMA
  19. LORCET [Concomitant]
     Indication: PAIN

REACTIONS (6)
  - Hand fracture [Unknown]
  - Osteoporosis [Unknown]
  - Multiple fractures [Unknown]
  - Ankle fracture [Unknown]
  - Arthritis [Unknown]
  - Glaucoma [Unknown]
